FAERS Safety Report 12931551 (Version 1)
Quarter: 2016Q4

REPORT INFORMATION
  Report Type: Report from Study
  Country: BR (occurrence: BR)
  Receive Date: 20161110
  Receipt Date: 20161110
  Transmission Date: 20170207
  Serious: Yes (Other)
  Sender: FDA-Public Use
  Company Number: BR-EMD SERONO-8116769

PATIENT
  Age: 12 Year
  Sex: Female

DRUGS (3)
  1. SAIZEN [Suspect]
     Active Substance: SOMATROPIN
     Dosage: RESUMED, INCREASED GRADUALLY
     Dates: start: 201603
  2. SAIZEN [Suspect]
     Active Substance: SOMATROPIN
     Dates: end: 20161024
  3. SAIZEN [Suspect]
     Active Substance: SOMATROPIN
     Indication: PRODUCT USED FOR UNKNOWN INDICATION
     Dates: start: 201508

REACTIONS (2)
  - Retinal oedema [Unknown]
  - Intracranial pressure increased [Unknown]

NARRATIVE: CASE EVENT DATE: 201510
